FAERS Safety Report 8270939-8 (Version None)
Quarter: 2012Q2

REPORT INFORMATION
  Report Type: 
  Country: None (occurrence: None)
  Receive Date: 20120410
  Receipt Date: 20120405
  Transmission Date: 20120825
  Serious: Yes (Other)
  Sender: FDA-Public Use
  Company Number: GB-PFIZER INC-2012086025

PATIENT
  Age: 46 Year
  Sex: Female
  Weight: 81 kg

DRUGS (11)
  1. FLUOXETINE [Concomitant]
     Dates: start: 20111017
  2. FENOFIBRATE [Concomitant]
     Dates: start: 20111205
  3. BENDROFLUMETHIAZIDE [Concomitant]
     Dates: start: 20111017
  4. CLOBETASONE BUTYRATE [Concomitant]
     Dates: start: 20120326
  5. DIPROBASE CREAM [Concomitant]
     Dates: start: 20120326
  6. TRANEXAMIC ACID [Suspect]
  7. ATENOLOL [Concomitant]
     Dates: start: 20111017
  8. NORETHIDRONE [Concomitant]
     Dates: start: 20111017
  9. ROSUVASTATIN [Concomitant]
     Dates: start: 20111205
  10. ACETAMINOPHEN AND CODEINE PHOSPHATE [Concomitant]
     Dates: start: 20120320
  11. BEZAFIBRATE [Concomitant]
     Dates: start: 20111116

REACTIONS (3)
  - BLOOD CHOLESTEROL INCREASED [None]
  - PHOTOSENSITIVITY REACTION [None]
  - BENIGN BREAST NEOPLASM [None]
